FAERS Safety Report 10727800 (Version 1)
Quarter: 2015Q1

REPORT INFORMATION
  Report Type: Report from Study
  Country: IT (occurrence: IT)
  Receive Date: 20150121
  Receipt Date: 20150121
  Transmission Date: 20150721
  Serious: Yes (Life-Threatening, Other)
  Sender: FDA-Public Use
  Company Number: IT-GLAXOSMITHKLINE-B1010115A

PATIENT
  Age: 66 Year
  Sex: Female

DRUGS (3)
  1. BLINDED TRIAL MEDICATION [Suspect]
     Active Substance: INVESTIGATIONAL PRODUCT
     Dates: start: 20140609
  2. TOPOTECAN HYDROCHLORIDE. [Suspect]
     Active Substance: TOPOTECAN HYDROCHLORIDE
     Indication: OVARIAN CANCER
     Dosage: RECEIVED DAYS 1 TO 5 125 MG/M230JUNE2014 DOSE REDUCED TO 1.0MG/M2
     Route: 042
     Dates: start: 20140609
  3. BLINDED TRIAL MEDICATION [Suspect]
     Active Substance: INVESTIGATIONAL PRODUCT
     Indication: OVARIAN CANCER
     Dosage: PERTUZUMAB OR PLACEBO EVERY 21 DAYS
     Route: 042
     Dates: start: 20140609

REACTIONS (2)
  - Thrombocytopenia [Recovered/Resolved]
  - Leukopenia [Recovered/Resolved]

NARRATIVE: CASE EVENT DATE: 20140620
